FAERS Safety Report 25617596 (Version 1)
Quarter: 2025Q3

REPORT INFORMATION
  Report Type: Spontaneous
  Country: EU (occurrence: EU)
  Receive Date: 20250729
  Receipt Date: 20250729
  Transmission Date: 20251021
  Serious: Yes (Disabling)
  Sender: TEVA
  Company Number: None

PATIENT
  Age: 29 Year
  Sex: Male
  Weight: 83 kg

DRUGS (2)
  1. CABERGOLINE [Suspect]
     Active Substance: CABERGOLINE
     Indication: Prolactin-producing pituitary tumour
     Dosage: 1X PER WEEK 1 PIECE 0.25 MG, BRAND NAME NOT SPECIFIED
     Route: 048
     Dates: start: 20240901
  2. QUINAGOLIDE HYDROCHLORIDE [Suspect]
     Active Substance: QUINAGOLIDE HYDROCHLORIDE
     Indication: Prolactin-producing pituitary tumour
     Dosage: 1 PIECE PER DAY, TABLET 75UG / QUINAGOLIDE TABLET 75MCG
     Route: 048
     Dates: start: 20241107, end: 20250101

REACTIONS (3)
  - Akathisia [Recovering/Resolving]
  - Disturbance in attention [Recovering/Resolving]
  - Panic attack [Not Recovered/Not Resolved]
